FAERS Safety Report 9889744 (Version 2)
Quarter: 2014Q2

REPORT INFORMATION
  Report Type: Report from Study
  Country: GB (occurrence: GB)
  Receive Date: 20140211
  Receipt Date: 20140404
  Transmission Date: 20141212
  Serious: Yes (Death)
  Sender: FDA-Public Use
  Company Number: GB-ROCHE-1347748

PATIENT
  Age: 82 Year
  Sex: Female

DRUGS (3)
  1. RANIBIZUMAB [Suspect]
     Indication: PRODUCT USED FOR UNKNOWN INDICATION
     Route: 050
     Dates: start: 20130110
  2. RANIBIZUMAB [Suspect]
     Route: 050
     Dates: start: 20130610
  3. RANIBIZUMAB [Suspect]
     Route: 050
     Dates: start: 20130918

REACTIONS (1)
  - Pulmonary embolism [Fatal]
